FAERS Safety Report 8786012 (Version 4)
Quarter: 2012Q4

REPORT INFORMATION
  Report Type: 
  Country: JP (occurrence: JP)
  Receive Date: 20120914
  Receipt Date: 20121221
  Transmission Date: 20130627
  Serious: Yes (Other)
  Sender: FDA-Public Use
  Company Number: PHHY2012JP079639

PATIENT
  Sex: Female

DRUGS (1)
  1. ZOMETA [Suspect]
     Indication: BONE LESION
     Route: 042
     Dates: start: 2008

REACTIONS (8)
  - Osteonecrosis of jaw [Unknown]
  - Implant site necrosis [Unknown]
  - Implant site swelling [Unknown]
  - Implant site pain [Unknown]
  - Implant site inflammation [Unknown]
  - General physical condition abnormal [Unknown]
  - Purulent discharge [Unknown]
  - Exposed bone in jaw [Unknown]
